FAERS Safety Report 14726732 (Version 1)
Quarter: 2018Q2

REPORT INFORMATION
  Report Type: Spontaneous
  Country: US (occurrence: US)
  Receive Date: 20180402
  Receipt Date: 20180402
  Transmission Date: 20180711
  Serious: Yes (Hospitalization)
  Sender: FDA-Public Use
  Company Number: None

PATIENT
  Age: 85 Year
  Sex: Male
  Weight: 76.43 kg

DRUGS (3)
  1. TAMSULOSIN [Suspect]
     Active Substance: TAMSULOSIN
     Indication: ATRIAL FIBRILLATION
     Route: 048
     Dates: start: 20180110, end: 20180118
  2. TAMSULOSIN [Suspect]
     Active Substance: TAMSULOSIN
     Indication: MITRAL VALVE REPAIR
     Route: 048
     Dates: start: 20180110, end: 20180118
  3. TAMSULOSIN [Suspect]
     Active Substance: TAMSULOSIN
     Indication: BENIGN PROSTATIC HYPERPLASIA
     Route: 048
     Dates: start: 20180110, end: 20180118

REACTIONS (2)
  - Hypotension [None]
  - Bradycardia [None]

NARRATIVE: CASE EVENT DATE: 20180117
